FAERS Safety Report 18504012 (Version 1)
Quarter: 2020Q4

REPORT INFORMATION
  Report Type: Report from Study
  Country: EG (occurrence: EG)
  Receive Date: 20201113
  Receipt Date: 20201113
  Transmission Date: 20210114
  Serious: Yes (Hospitalization, Disabling, Other)
  Sender: FDA-Public Use
  Company Number: NVSC2020EG295605

PATIENT
  Age: 62 Year
  Sex: Male

DRUGS (1)
  1. TASIGNA [Suspect]
     Active Substance: NILOTINIB
     Indication: CHRONIC MYELOID LEUKAEMIA
     Dosage: 800 MG, QD
     Route: 065

REACTIONS (10)
  - Diarrhoea [Recovered/Resolved]
  - Polymerase chain reaction positive [Recovering/Resolving]
  - Movement disorder [Recovered/Resolved]
  - Anaemia [Recovering/Resolving]
  - Coma [Not Recovered/Not Resolved]
  - Pyrexia [Recovered/Resolved]
  - Haemorrhoids [Recovered/Resolved]
  - Rash [Not Recovered/Not Resolved]
  - White blood cell count decreased [Recovered/Resolved]
  - Platelet count decreased [Recovered/Resolved]

NARRATIVE: CASE EVENT DATE: 2013
